FAERS Safety Report 26168045 (Version 1)
Quarter: 2025Q4

REPORT INFORMATION
  Report Type: Spontaneous
  Country: US (occurrence: US)
  Receive Date: 20251217
  Receipt Date: 20251217
  Transmission Date: 20260117
  Serious: No
  Sender: PACIRA
  Company Number: US-ORG100016242-2024000702

PATIENT
  Age: 60 Year
  Sex: Male

DRUGS (2)
  1. EXPAREL [Suspect]
     Active Substance: BUPIVACAINE
     Indication: Foot operation
     Dosage: 133 MG
     Route: 065
  2. BUPIVACAINE [Suspect]
     Active Substance: BUPIVACAINE
     Indication: Elective surgery
     Dosage: NOT PROVIDED; AFTER 24H OF EXPAREL
     Route: 065

REACTIONS (3)
  - Elective surgery [Unknown]
  - No adverse event [Unknown]
  - Labelled drug-drug interaction medication error [Unknown]
